FAERS Safety Report 4902393-5 (Version None)
Quarter: 2006Q1

REPORT INFORMATION
  Report Type: 
  Country: None (occurrence: None)
  Receive Date: 20060203
  Receipt Date: 20060203
  Transmission Date: 20060701
  Serious: Yes (Hospitalization)
  Sender: FDA-Public Use
  Company Number: None

PATIENT
  Age: 43 Year
  Sex: Female
  Weight: 76.3 kg

DRUGS (6)
  1. CAPECITABINE [Suspect]
     Indication: BREAST CANCER METASTATIC
     Dosage: 1162 MG/DAY PO
     Route: 048
     Dates: start: 20050602, end: 20051209
  2. CAPECITABINE [Suspect]
     Indication: BREAST CANCER METASTATIC
     Dosage: BID PO
     Route: 048
     Dates: start: 20051216
  3. ZOMETA [Concomitant]
  4. VITAMIN B-12 [Concomitant]
  5. DULCOLAX [Concomitant]
  6. CODEINE [Concomitant]

REACTIONS (1)
  - PANCREATITIS [None]
